FAERS Safety Report 5397483-X (Version None)
Quarter: 2007Q3

REPORT INFORMATION
  Report Type: 
  Country: None (occurrence: None)
  Receive Date: 20070726
  Receipt Date: 20070718
  Transmission Date: 20080115
  Serious: No
  Sender: FDA-Public Use
  Company Number: US-BAXTER-2007BH006439

PATIENT
  Age: 37 Year
  Sex: Female

DRUGS (3)
  1. ONDANSETRON, UNSPECIFIED [Suspect]
     Indication: NAUSEA
     Route: 042
  2. LIDOCAINE [Concomitant]
     Indication: DRUG USE FOR UNKNOWN INDICATION
     Dosage: DOSE UNIT:CUBIC CENTIMETER
     Route: 065
  3. METOCLOPRAMIDE [Concomitant]
     Indication: DRUG USE FOR UNKNOWN INDICATION
     Route: 065

REACTIONS (2)
  - ENCEPHALOPATHY [None]
  - EXTRAPYRAMIDAL DISORDER [None]
